FAERS Safety Report 16038865 (Version 1)
Quarter: 2019Q1

REPORT INFORMATION
  Report Type: Spontaneous
  Country: ES (occurrence: ES)
  Receive Date: 20190306
  Receipt Date: 20190306
  Transmission Date: 20190418
  Serious: Yes (Hospitalization)
  Sender: FDA-Public Use
  Company Number: PHHY2019ES047394

PATIENT
  Age: 39 Year
  Sex: Female

DRUGS (2)
  1. METHOTREXATE. [Suspect]
     Active Substance: METHOTREXATE
     Indication: PRODUCT USED FOR UNKNOWN INDICATION
     Dosage: UNK
     Route: 065
  2. BARICITINIB [Suspect]
     Active Substance: BARICITINIB
     Indication: RHEUMATOID ARTHRITIS
     Dosage: 4 MG, UNK
     Route: 048

REACTIONS (15)
  - Diarrhoea [Recovered/Resolved]
  - Nausea [Unknown]
  - Pain [Recovered/Resolved]
  - Nausea [Recovered/Resolved]
  - Vomiting [Unknown]
  - Chills [Recovered/Resolved]
  - Dyspepsia [Recovered/Resolved]
  - Epigastric discomfort [Recovered/Resolved]
  - Abdominal pain upper [Recovered/Resolved]
  - Burning sensation [Recovered/Resolved]
  - Feeling abnormal [Unknown]
  - Pancreatitis [Recovered/Resolved]
  - Malaise [Recovered/Resolved]
  - Viral infection [Unknown]
  - Abdominal discomfort [Unknown]

NARRATIVE: CASE EVENT DATE: 201902
